FAERS Safety Report 24635946 (Version 1)
Quarter: 2024Q4

REPORT INFORMATION
  Report Type: Spontaneous
  Country: US (occurrence: US)
  Receive Date: 20241119
  Receipt Date: 20241119
  Transmission Date: 20250114
  Serious: No
  Sender: CATALYST PHARMA
  Company Number: US-CATALYST PHARMACEUTICALS-US-CATA-24-01151

PATIENT
  Age: 6 Year
  Sex: Male
  Weight: 23.129 kg

DRUGS (3)
  1. AGAMREE [Suspect]
     Active Substance: VAMOROLONE
     Indication: Duchenne muscular dystrophy
     Dosage: 3.3 ML DAILY
     Route: 048
     Dates: start: 20240320
  2. VITAMINS [Concomitant]
     Active Substance: VITAMINS
     Indication: Product used for unknown indication
     Dosage: ONCE A DAY
     Route: 065
  3. CHILDRENS IBUPROFEN [Concomitant]
     Active Substance: IBUPROFEN
     Indication: Migraine
     Dosage: 5 ML AS NEEDED
     Route: 065

REACTIONS (1)
  - Flatulence [Recovered/Resolved]

NARRATIVE: CASE EVENT DATE: 20241001
